FAERS Safety Report 10592755 (Version 1)
Quarter: 2014Q4

REPORT INFORMATION
  Report Type: Spontaneous
  Country: US (occurrence: None)
  Receive Date: 20141117
  Receipt Date: 20141117
  Transmission Date: 20150529
  Serious: Yes (Hospitalization)
  Sender: FDA-Public Use
  Company Number: INS201410-000248

PATIENT
  Sex: Female

DRUGS (5)
  1. SUBSYS [Suspect]
     Active Substance: FENTANYL
     Indication: PAIN
  2. CYMBALTA [Concomitant]
     Active Substance: DULOXETINE HYDROCHLORIDE
  3. OXYCONTIN [Concomitant]
     Active Substance: OXYCODONE HYDROCHLORIDE
  4. OXYCODONE (OXYCODONE) [Concomitant]
     Active Substance: OXYCODONE
  5. ADDERALL (AMPHETAMINE, DEXTROAMPHETAMINE) [Concomitant]

REACTIONS (2)
  - Influenza [None]
  - Off label use [None]
